FAERS Safety Report 21003302 (Version 1)
Quarter: 2022Q2

REPORT INFORMATION
  Report Type: Spontaneous
  Country: GB (occurrence: GB)
  Receive Date: 20220624
  Receipt Date: 20220624
  Transmission Date: 20220721
  Serious: Yes (Other)
  Sender: FDA-Public Use
  Company Number: None

PATIENT
  Age: 65 Year
  Sex: Female
  Weight: 66.00 kg

DRUGS (7)
  1. APIXABAN [Suspect]
     Active Substance: APIXABAN
     Indication: Chest pain
     Dosage: STRENGTH: 2.5 MG, 5 MG
     Route: 048
  2. APIXABAN [Concomitant]
     Active Substance: APIXABAN
     Dosage: ONE TABLET TWICE A DAY, STRENGTH: 2.5 MG, 5 MG
     Dates: start: 20220517, end: 20220606
  3. BISOPROLOL [Concomitant]
     Active Substance: BISOPROLOL
     Dosage: ONE DAILY, STRENGTH: 1.25 MG
     Dates: start: 20220429
  4. CHLORAMPHENICOL [Concomitant]
     Active Substance: CHLORAMPHENICOL
     Dosage: QID,  STRENGTH: 1%
     Dates: start: 20220429
  5. METRONIDAZOLE [Concomitant]
     Active Substance: METRONIDAZOLE
     Dosage: ONE TWICE A DAY ( AVOID ALCOHOL ), STRENGTH: 400 MG
     Dates: start: 20220411
  6. PREDNISOLONE [Concomitant]
     Active Substance: PREDNISOLONE
     Dosage: AS NEEDED FOR WEANING, STRENGTH: 2.5 MG
     Dates: start: 20220428
  7. RIVAROXABAN [Concomitant]
     Active Substance: RIVAROXABAN
     Dosage: TAKE ONE WITH FOOD, STRENGTH: 10 MG, 20 MG
     Dates: start: 20220608

REACTIONS (1)
  - Depressed level of consciousness [Recovered/Resolved]

NARRATIVE: CASE EVENT DATE: 20220517
